FAERS Safety Report 6404216-4 (Version None)
Quarter: 2009Q4

REPORT INFORMATION
  Report Type: 
  Country: None (occurrence: None)
  Receive Date: 20091016
  Receipt Date: 20091012
  Transmission Date: 20100525
  Serious: Yes (Death, Hospitalization, Other)
  Sender: FDA-Public Use
  Company Number: US-AMGEN-US356757

PATIENT
  Sex: Male
  Weight: 83.5 kg

DRUGS (15)
  1. NPLATE [Suspect]
     Indication: IDIOPATHIC THROMBOCYTOPENIC PURPURA
     Route: 058
     Dates: start: 20090623, end: 20090623
  2. IMMUNOGLOBULINS [Concomitant]
     Route: 042
  3. AMIODARONE [Concomitant]
  4. COUMADIN [Concomitant]
  5. DIGOXIN [Concomitant]
  6. FLUTICASONE PROPIONATE [Concomitant]
     Route: 045
  7. LEVOTHYROXINE SODIUM [Concomitant]
  8. OMEPRAZOLE [Concomitant]
  9. BECLOMETHASONE DIPROPIONATE [Concomitant]
  10. DOCUSATE SODIUM [Concomitant]
  11. SENNOSIDE [Concomitant]
  12. ACETAMINOPHEN [Concomitant]
  13. RISPERDAL [Concomitant]
  14. MULTI-VITAMINS [Concomitant]
  15. LOVASTATIN [Concomitant]

REACTIONS (5)
  - DEEP VEIN THROMBOSIS [None]
  - PNEUMONIA [None]
  - PULMONARY EMBOLISM [None]
  - RESPIRATORY FAILURE [None]
  - SYSTEMIC INFLAMMATORY RESPONSE SYNDROME [None]
